FAERS Safety Report 20193273 (Version 1)
Quarter: 2021Q4

REPORT INFORMATION
  Report Type: Spontaneous
  Country: US (occurrence: None)
  Receive Date: 20211215
  Receipt Date: 20211215
  Transmission Date: 20220303
  Serious: Yes (Hospitalization)
  Sender: FDA-Public Use
  Company Number: None

PATIENT
  Sex: Female

DRUGS (14)
  1. ENBREL [Suspect]
     Active Substance: ETANERCEPT
  2. CITALOPRAM [Concomitant]
  3. CLARITIN CHW [Concomitant]
  4. DOXYCYCL HYC [Concomitant]
  5. DULOXETINE CAP [Concomitant]
  6. ENBREL INJ [Concomitant]
  7. ESCITALOPRAM TAB [Concomitant]
  8. FAMOTIDINE [Concomitant]
     Active Substance: FAMOTIDINE
  9. FOLIC ACID [Concomitant]
  10. METAXALONE TAB [Concomitant]
  11. NASAL DECONG [Concomitant]
  12. NEXIUM CAP [Concomitant]
  13. TURMERIC TAB [Concomitant]
  14. VITAMIN D3 CHW [Concomitant]
     Route: 058
     Dates: start: 20180525

REACTIONS (8)
  - Rash [None]
  - Condition aggravated [None]
  - Pain of skin [None]
  - Pain in extremity [None]
  - Arthralgia [None]
  - Back pain [None]
  - Arthralgia [None]
  - Sleep disorder [None]
